FAERS Safety Report 6683184-4 (Version None)
Quarter: 2010Q2

REPORT INFORMATION
  Report Type: 
  Country: None (occurrence: None)
  Receive Date: 20100415
  Receipt Date: 20100406
  Transmission Date: 20101027
  Serious: Yes (Other)
  Sender: FDA-Public Use
  Company Number: US-SANOFI-AVENTIS-2010SA010722

PATIENT
  Age: 35 Year
  Sex: Male
  Weight: 81.64 kg

DRUGS (11)
  1. LANTUS [Suspect]
     Dosage: 20-24 UNITS
     Route: 058
     Dates: start: 20051101
  2. OPTICLICK [Suspect]
     Dates: start: 20060101
  3. MINOXIDIL [Concomitant]
     Indication: BLOOD PRESSURE
  4. METOPROLOL TARTRATE [Concomitant]
     Indication: BLOOD PRESSURE
  5. AMLODIPINE [Concomitant]
     Indication: BLOOD PRESSURE
  6. LEVOTHYROXINE SODIUM [Concomitant]
  7. PROTONIX [Concomitant]
     Indication: GASTRIC DISORDER
  8. REGLAN /YUG/ [Concomitant]
     Indication: GASTRIC DISORDER
  9. SENSIPAR [Concomitant]
  10. GABAPENTIN [Concomitant]
  11. PHOSLO [Concomitant]

REACTIONS (4)
  - COUGH [None]
  - KIDNEY TRANSPLANT REJECTION [None]
  - NASAL CONGESTION [None]
  - RENAL TRANSPLANT [None]
